FAERS Safety Report 6735575-0 (Version None)
Quarter: 2010Q2

REPORT INFORMATION
  Report Type: 
  Country: None (occurrence: None)
  Receive Date: 20100521
  Receipt Date: 20100519
  Transmission Date: 20101027
  Serious: Yes (Death)
  Sender: FDA-Public Use
  Company Number: US-GILEAD-2010-0029283

PATIENT
  Sex: Male
  Weight: 56.75 kg

DRUGS (14)
  1. LETAIRIS [Suspect]
     Indication: PULMONARY ARTERIAL HYPERTENSION
     Route: 048
     Dates: start: 20090312, end: 20100430
  2. REVATIO [Concomitant]
  3. COUMADIN [Concomitant]
  4. ASPIRIN [Concomitant]
  5. ZOCOR [Concomitant]
  6. BACTRIM DS [Concomitant]
  7. PREDNISONE [Concomitant]
  8. ALBUTEROL [Concomitant]
  9. IPRATROPIUM [Concomitant]
  10. GLUCOPHAGE [Concomitant]
  11. GLUCOSE [Concomitant]
  12. NPH INSULIN [Concomitant]
  13. REGULAR INSULIN [Concomitant]
  14. NUTRI SUP [Concomitant]

REACTIONS (1)
  - DEATH [None]
